FAERS Safety Report 21698891 (Version 3)
Quarter: 2023Q1

REPORT INFORMATION
  Report Type: Spontaneous
  Country: US (occurrence: US)
  Receive Date: 20221208
  Receipt Date: 20230113
  Transmission Date: 20230417
  Serious: No
  Sender: FDA-Public Use
  Company Number: US-PFIZER INC-PV202200117974

PATIENT
  Age: 11 Year
  Sex: Female

DRUGS (1)
  1. GENOTROPIN [Suspect]
     Active Substance: SOMATROPIN
     Dosage: 1.4 MG, DAILY
     Dates: start: 20221201

REACTIONS (4)
  - Accidental underdose [Unknown]
  - Wrong technique in device usage process [Unknown]
  - Injection site discharge [Unknown]
  - Device leakage [Unknown]

NARRATIVE: CASE EVENT DATE: 20221201
